FAERS Safety Report 8502266-5 (Version None)
Quarter: 2012Q3

REPORT INFORMATION
  Report Type: 
  Country: None (occurrence: None)
  Receive Date: 20120711
  Receipt Date: 20120706
  Transmission Date: 20120928
  Serious: Yes (Death, Hospitalization)
  Sender: FDA-Public Use
  Company Number: DE-BAYER-2011-020130

PATIENT
  Sex: Male
  Weight: 101.3 kg

DRUGS (7)
  1. SORAFENIB (RAF KINASE INHIBITOR) [Suspect]
     Dosage: DAILY DOSE 800 MG
     Dates: end: 20111028
  2. ANTIHYPERTENSIVES [Concomitant]
  3. SORAFENIB (RAF KINASE INHIBITOR) [Suspect]
     Dosage: 400 MG QD
     Route: 048
     Dates: start: 20110303, end: 20111103
  4. DOXORUBICIN HCL [Suspect]
     Dosage: 100.8 PER CYCLE FOR 7 CYCLES
     Dates: start: 20101027, end: 20110502
  5. SORAFENIB (RAF KINASE INHIBITOR) [Suspect]
     Indication: HEPATIC NEOPLASM MALIGNANT
     Dosage: DAILY DOSE 800 MG
     Route: 048
     Dates: start: 20101229, end: 20110225
  6. DOXORUBICIN HCL [Suspect]
     Indication: HEPATIC NEOPLASM MALIGNANT
     Dosage: DAILY DOSE 135 MG
     Route: 042
     Dates: start: 20101227, end: 20110207
  7. DOXORUBICIN HCL [Suspect]
     Dosage: DAILY DOSE 100.8 MG
     Route: 042
     Dates: start: 20110502, end: 20110502

REACTIONS (6)
  - MULTI-ORGAN FAILURE [None]
  - CARDIAC FAILURE CONGESTIVE [None]
  - GENERALISED OEDEMA [None]
  - INTESTINAL ISCHAEMIA [None]
  - SKIN ULCER [None]
  - BLOOD PRESSURE IMMEASURABLE [None]
